FAERS Safety Report 9291970 (Version 1)
Quarter: 2013Q2

REPORT INFORMATION
  Report Type: Spontaneous
  Country: US (occurrence: US)
  Receive Date: 20130516
  Receipt Date: 20130516
  Transmission Date: 20140414
  Serious: No
  Sender: FDA-Public Use
  Company Number: US-PFIZER INC-0011427501PHAMED

PATIENT
  Age: 56 Year
  Sex: Female

DRUGS (2)
  1. ALPRAZOLAM [Suspect]
     Indication: ANXIETY
     Dosage: UNIT DOSE: NULL OR RANGE (LOW TO HI): 00000001 TO 00000002 MG FREQUENCY 002 EVERY 01 DAYS
     Route: 048
  2. ALPRAZOLAM [Suspect]
     Indication: PANIC DISORDER

REACTIONS (2)
  - Depression [Recovered/Resolved]
  - Aggression [Recovered/Resolved]
